FAERS Safety Report 18521801 (Version 1)
Quarter: 2020Q4

REPORT INFORMATION
  Report Type: Spontaneous
  Country: CN (occurrence: CN)
  Receive Date: 20201119
  Receipt Date: 20201119
  Transmission Date: 20210114
  Serious: Yes (Death, Hospitalization, Other)
  Sender: FDA-Public Use
  Company Number: CN-TEVA-2020-CN-1851089

PATIENT
  Age: 56 Year
  Sex: Male

DRUGS (11)
  1. AZITHROMYCIN ANHYDROUS. [Suspect]
     Active Substance: AZITHROMYCIN ANHYDROUS
     Indication: LEGIONELLA INFECTION
     Dosage: 500 MILLIGRAM DAILY;
     Route: 048
     Dates: start: 2019, end: 2019
  2. TACROLIMUS. [Suspect]
     Active Substance: TACROLIMUS
     Indication: IMMUNOSUPPRESSANT DRUG THERAPY
     Dosage: 2 MILLIGRAM DAILY;
     Route: 065
  3. MYCOPHENOLATE [Suspect]
     Active Substance: MYCOPHENOLIC ACID
     Indication: IMMUNOSUPPRESSANT DRUG THERAPY
     Dosage: .5 MILLIGRAM DAILY;
     Route: 065
  4. MOXIFLOXACIN. [Suspect]
     Active Substance: MOXIFLOXACIN
     Indication: LEGIONELLA INFECTION
     Dosage: 400 MILLIGRAM DAILY;
     Route: 042
     Dates: start: 2019, end: 2019
  5. MOXIFLOXACIN. [Suspect]
     Active Substance: MOXIFLOXACIN
     Indication: LEGIONELLA INFECTION
     Dosage: 400 MILLIGRAM DAILY;
     Route: 048
     Dates: start: 2019
  6. DEPAKIN [Suspect]
     Active Substance: VALPROATE SODIUM
     Indication: SEIZURE
     Route: 065
     Dates: start: 2019
  7. CIPROFLOXACIN. [Suspect]
     Active Substance: CIPROFLOXACIN
     Indication: LEGIONELLA INFECTION
     Dosage: RECEIVED UNTIL THE DAY BEFORE THE PATIENT DIED
     Route: 042
     Dates: start: 2019, end: 2019
  8. MEROPENEM. [Concomitant]
     Active Substance: MEROPENEM
     Indication: EVIDENCE BASED TREATMENT
     Dosage: 2000 MILLIGRAM DAILY;
     Route: 042
     Dates: start: 2019, end: 2019
  9. PREDNISONE. [Suspect]
     Active Substance: PREDNISONE
     Indication: IMMUNOSUPPRESSANT DRUG THERAPY
     Dosage: 10 MILLIGRAM DAILY;
     Route: 065
  10. PIPERACILLIN. [Concomitant]
     Active Substance: PIPERACILLIN SODIUM
     Indication: EVIDENCE BASED TREATMENT
     Dosage: 10 GRAM DAILY;
     Route: 042
     Dates: start: 2019, end: 2019
  11. TIGECYCLINE. [Suspect]
     Active Substance: TIGECYCLINE
     Indication: LEGIONELLA INFECTION
     Route: 065
     Dates: start: 2019

REACTIONS (5)
  - Pneumonia legionella [Unknown]
  - Seizure [Unknown]
  - Electrocardiogram QT prolonged [Unknown]
  - Cardiac arrest [Fatal]
  - Drug ineffective [Unknown]

NARRATIVE: CASE EVENT DATE: 2019
